FAERS Safety Report 9555097 (Version 1)
Quarter: 2013Q3

REPORT INFORMATION
  Report Type: Spontaneous
  Country: US (occurrence: None)
  Receive Date: 20130724
  Receipt Date: 20130724
  Transmission Date: 20140515
  Serious: Yes (Other)
  Sender: FDA-Public Use
  Company Number: PHEH2013US005705

PATIENT
  Sex: Male

DRUGS (7)
  1. AMBIEN (ZOLPIDEM TARTRATE) [Concomitant]
  2. NEURONTIN//ACETYLCARNITINE HYDROCHLORIDE [Concomitant]
  3. OMEPRAZOLE [Concomitant]
  4. BACLOFEN [Concomitant]
  5. PROZAC (FLUOXETINE HYDROCHLORIDE) [Concomitant]
  6. GILENYA [Suspect]
  7. XANAX (ALPRAZOLAM) [Concomitant]

REACTIONS (1)
  - Influenza like illness [None]
